FAERS Safety Report 6119546-3 (Version None)
Quarter: 2009Q1

REPORT INFORMATION
  Report Type: 
  Country: None (occurrence: None)
  Receive Date: 20090316
  Receipt Date: 20090311
  Transmission Date: 20090719
  Serious: Yes (Other)
  Sender: FDA-Public Use
  Company Number: B0553077A

PATIENT
  Age: 3 Year
  Sex: Female

DRUGS (2)
  1. CLAVAMOX [Suspect]
     Indication: OTITIS MEDIA ACUTE
     Route: 048
     Dates: start: 20081212, end: 20081212
  2. BIOFERMIN [Concomitant]
     Dosage: 3G PER DAY
     Route: 048
     Dates: start: 20081212

REACTIONS (2)
  - CONVULSION [None]
  - TREMOR [None]
